FAERS Safety Report 16142408 (Version 1)
Quarter: 2019Q2

REPORT INFORMATION
  Report Type: Spontaneous
  Country: IT (occurrence: IT)
  Receive Date: 20190401
  Receipt Date: 20190401
  Transmission Date: 20190711
  Serious: Yes (Hospitalization)
  Sender: FDA-Public Use
  Company Number: IT-SA-2019SA031747

PATIENT
  Age: 81 Year
  Sex: Female

DRUGS (4)
  1. TOTALIP [Concomitant]
     Active Substance: ATORVASTATIN
     Dosage: UNK, UNK
     Route: 065
  2. PLAVIX [Suspect]
     Active Substance: CLOPIDOGREL BISULFATE
     Indication: ANGIOPLASTY
     Dosage: 75 MG, QD
     Route: 048
     Dates: start: 20170101, end: 20190120
  3. CONGESCOR [Concomitant]
     Active Substance: BISOPROLOL
     Dosage: UNK, UNK
  4. ENAPREN [Concomitant]
     Active Substance: ENALAPRIL MALEATE
     Dosage: UNK, UNK

REACTIONS (1)
  - Haemoptysis [Unknown]

NARRATIVE: CASE EVENT DATE: 20190120
